FAERS Safety Report 23957805 (Version 1)
Quarter: 2024Q2

REPORT INFORMATION
  Report Type: Spontaneous
  Country: US (occurrence: US)
  Receive Date: 20240610
  Receipt Date: 20240610
  Transmission Date: 20240716
  Serious: No
  Sender: FDA-Public Use
  Company Number: US-E2BLSMVVAL-SPO/USA/24/0008163

PATIENT
  Age: 15 Year
  Sex: Female

DRUGS (1)
  1. ZENATANE [Suspect]
     Active Substance: ISOTRETINOIN
     Indication: Product used for unknown indication

REACTIONS (6)
  - Epistaxis [Unknown]
  - Lip dry [Unknown]
  - Mood swings [Unknown]
  - Vision blurred [Unknown]
  - Dry eye [Unknown]
  - Treatment noncompliance [Unknown]
